FAERS Safety Report 5065147-8 (Version None)
Quarter: 2006Q3

REPORT INFORMATION
  Report Type: 
  Country: None (occurrence: None)
  Receive Date: 20060725
  Receipt Date: 20060713
  Transmission Date: 20061208
  Serious: Yes (Other)
  Sender: FDA-Public Use
  Company Number: B0431793A

PATIENT
  Age: 49 Year
  Sex: Female

DRUGS (5)
  1. ZANTAC [Suspect]
     Indication: PREMEDICATION
     Dosage: 50 MG INTRAVENOUS
     Route: 042
  2. ZANTAC [Suspect]
     Dosage: 75 MG SINGLE DOSE ORAL
     Route: 048
  3. PREDNISOLONE [Concomitant]
  4. PHENIRAMINE [Concomitant]
  5. ACETAMINOPHEN [Concomitant]

REACTIONS (2)
  - ANAPHYLACTIC REACTION [None]
  - HYPOAESTHESIA [None]
